FAERS Safety Report 8341166-0 (Version None)
Quarter: 2012Q2

REPORT INFORMATION
  Report Type: 
  Country: None (occurrence: None)
  Receive Date: 20120507
  Receipt Date: 20120501
  Transmission Date: 20120825
  Serious: No
  Sender: FDA-Public Use
  Company Number: US-PFIZER INC-2012107138

PATIENT
  Sex: Female

DRUGS (2)
  1. PREMARIN [Suspect]
     Dosage: UNK
     Dates: start: 20111001
  2. PREMARIN [Suspect]
     Dosage: UNK
     Dates: start: 20111001

REACTIONS (2)
  - HEADACHE [None]
  - BACK PAIN [None]
